FAERS Safety Report 7555548-8 (Version None)
Quarter: 2011Q2

REPORT INFORMATION
  Report Type: 
  Country: None (occurrence: None)
  Receive Date: 20110617
  Receipt Date: 20021119
  Transmission Date: 20111010
  Serious: Yes (Hospitalization)
  Sender: FDA-Public Use
  Company Number: PHEH2002US04359

PATIENT
  Sex: Female

DRUGS (18)
  1. METAMUCIL-2 [Concomitant]
  2. EXELON [Suspect]
     Dosage: 1.5 MG, BID
     Dates: start: 20020329
  3. LEVAQUIN [Concomitant]
     Dates: end: 20020427
  4. ZESTRIL [Concomitant]
  5. AMBIEN [Concomitant]
  6. PREVACID [Concomitant]
  7. PRAVACHOL [Concomitant]
  8. NORVASC [Concomitant]
  9. EXELON [Suspect]
     Dosage: 3 MG, BID
     Route: 048
     Dates: start: 20020617
  10. COLACE [Concomitant]
     Dosage: UNK
  11. PREMARIN [Concomitant]
  12. EXELON [Suspect]
     Indication: DEMENTIA ALZHEIMER'S TYPE
     Dosage: 4.5 MG, BID
     Dates: start: 20020426
  13. BENADRYL [Suspect]
     Dosage: UNK, UNK
     Dates: end: 20020427
  14. ACCUPRIL [Concomitant]
  15. ZOLOFT [Concomitant]
  16. PRILOSEC [Concomitant]
  17. REMERON [Concomitant]
  18. PRAVACHOL [Concomitant]

REACTIONS (18)
  - HEART RATE DECREASED [None]
  - BARRETT'S OESOPHAGUS [None]
  - BLOOD PRESSURE INCREASED [None]
  - LOSS OF CONSCIOUSNESS [None]
  - LETHARGY [None]
  - DECREASED APPETITE [None]
  - OVERDOSE [None]
  - DIARRHOEA [None]
  - DEHYDRATION [None]
  - BLOOD POTASSIUM DECREASED [None]
  - DISEASE PROGRESSION [None]
  - URINARY INCONTINENCE [None]
  - URINARY TRACT INFECTION [None]
  - PRURITUS [None]
  - CONFUSIONAL STATE [None]
  - HALLUCINATION [None]
  - DIVERTICULUM OESOPHAGEAL [None]
  - SYNCOPE [None]
